FAERS Safety Report 11122783 (Version 1)
Quarter: 2015Q2

REPORT INFORMATION
  Report Type: Spontaneous
  Country: US (occurrence: US)
  Receive Date: 20150519
  Receipt Date: 20150519
  Transmission Date: 20150821
  Serious: No
  Sender: FDA-Public Use
  Company Number: US-PFIZER INC-2015155864

PATIENT
  Age: 64 Year
  Sex: Female
  Weight: 57 kg

DRUGS (3)
  1. ESTRING [Suspect]
     Active Substance: ESTRADIOL
     Indication: OESTROGEN REPLACEMENT THERAPY
     Dosage: UNK
     Dates: start: 2011
  2. SYNTHROID [Concomitant]
     Active Substance: LEVOTHYROXINE SODIUM
     Indication: THYROID DISORDER
     Dosage: UNK
  3. LIPITOR [Concomitant]
     Active Substance: ATORVASTATIN CALCIUM
     Indication: BLOOD CHOLESTEROL
     Dosage: UNK

REACTIONS (1)
  - Vaginal infection [Not Recovered/Not Resolved]

NARRATIVE: CASE EVENT DATE: 20150505
